FAERS Safety Report 13117079 (Version 2)
Quarter: 2017Q1

REPORT INFORMATION
  Report Type: Report from Study
  Country: SE (occurrence: SE)
  Receive Date: 20170116
  Receipt Date: 20170119
  Transmission Date: 20170428
  Serious: Yes (Hospitalization)
  Sender: FDA-Public Use
  Company Number: SE-BEH-200208566

PATIENT
  Age: 82 Year
  Sex: Female

DRUGS (3)
  1. HAEMATE P [Suspect]
     Active Substance: ANTIHEMOPHILIC FACTOR HUMAN
     Indication: KNEE ARTHROPLASTY
     Route: 042
     Dates: start: 20021104, end: 20021104
  2. CYKLOKAPRON [Suspect]
     Active Substance: TRANEXAMIC ACID
     Dosage: DAILY DOSE QUANTITY: 4.5, DAILY DOSE UNIT: G
     Route: 048
     Dates: start: 20021127
  3. HAEMATE P [Suspect]
     Active Substance: ANTIHEMOPHILIC FACTOR HUMAN
     Indication: VON WILLEBRAND^S DISEASE
     Dosage: UNK UNK, QD
     Route: 042
     Dates: start: 20021126

REACTIONS (2)
  - Pulmonary embolism [Recovered/Resolved]
  - Dyspnoea [Recovered/Resolved]

NARRATIVE: CASE EVENT DATE: 20021206
